FAERS Safety Report 6250520-2 (Version None)
Quarter: 2009Q2

REPORT INFORMATION
  Report Type: 
  Country: None (occurrence: None)
  Receive Date: 20090630
  Receipt Date: 20090623
  Transmission Date: 20091009
  Serious: Yes (Other)
  Sender: FDA-Public Use
  Company Number: US-ROCHE-640468

PATIENT
  Age: 52 Year
  Sex: Male

DRUGS (2)
  1. VALIUM [Suspect]
     Route: 048
     Dates: start: 20081001
  2. DIAZEPAM [Suspect]
     Indication: DRUG USE FOR UNKNOWN INDICATION
     Route: 065
     Dates: start: 20090101

REACTIONS (2)
  - FEELING OF RELAXATION [None]
  - TRANSIENT ISCHAEMIC ATTACK [None]
